FAERS Safety Report 9105896 (Version 1)
Quarter: 2013Q1

REPORT INFORMATION
  Report Type: Spontaneous
  Country: US (occurrence: US)
  Receive Date: 20130220
  Receipt Date: 20130220
  Transmission Date: 20140127
  Serious: No
  Sender: FDA-Public Use
  Company Number: US-JNJFOC-20130203462

PATIENT
  Age: 47 Year
  Sex: Female
  Weight: 78.93 kg

DRUGS (5)
  1. DURAGESIC [Suspect]
     Indication: MUSCULOSKELETAL PAIN
     Dosage: TWO PATCHES OF 100UG/HR
     Route: 062
     Dates: start: 20130204
  2. DURAGESIC [Suspect]
     Indication: BACK PAIN
     Dosage: TWO PATCHES OF 100UG/HR
     Route: 062
     Dates: start: 20130204
  3. MORPHINE [Concomitant]
     Indication: BREAKTHROUGH PAIN
     Dosage: STRENGTH 30 MG
     Route: 048
     Dates: start: 201301
  4. XANAX [Concomitant]
     Indication: ANXIETY
     Dosage: AS NEEDED UP TO 3 TIMES
     Route: 048
  5. SOMA [Concomitant]
     Indication: MUSCLE SPASMS
     Route: 048

REACTIONS (9)
  - Drug administered at inappropriate site [Not Recovered/Not Resolved]
  - Product quality issue [Not Recovered/Not Resolved]
  - Product quality issue [Unknown]
  - Product quality issue [Unknown]
  - Product quality issue [Not Recovered/Not Resolved]
  - Wrong technique in drug usage process [Not Recovered/Not Resolved]
  - Poor quality drug administered [Not Recovered/Not Resolved]
  - Product quality issue [Unknown]
  - Wrong technique in drug usage process [Unknown]
